FAERS Safety Report 4462639-7 (Version None)
Quarter: 2004Q3

REPORT INFORMATION
  Report Type: 
  Country: None (occurrence: None)
  Receive Date: 20040929
  Receipt Date: 20040917
  Transmission Date: 20050211
  Serious: Yes (Other)
  Sender: FDA-Public Use
  Company Number: USA-2004-0016862

PATIENT
  Sex: Male

DRUGS (2)
  1. OXYCONTIN [Suspect]
     Indication: PAIN
     Dates: start: 20020304, end: 20021123
  2. PEROCET (PARACETAMOL,  OXYCODONE HYDROCHLORIDE) [Suspect]
     Dosage: SEE IMAGE

REACTIONS (7)
  - ANXIETY [None]
  - APATHY [None]
  - APHAGIA [None]
  - DECREASED APPETITE [None]
  - DEPRESSION [None]
  - EMOTIONAL DISORDER [None]
  - SUICIDAL IDEATION [None]
